FAERS Safety Report 7240241-1 (Version None)
Quarter: 2011Q1

REPORT INFORMATION
  Report Type: 
  Country: None (occurrence: None)
  Receive Date: 20110124
  Receipt Date: 20110118
  Transmission Date: 20110831
  Serious: Yes (Death)
  Sender: FDA-Public Use
  Company Number: US-ASTELLAS-2011US000205

PATIENT

DRUGS (6)
  1. MYFORTIC [Concomitant]
     Indication: PANCREAS TRANSPLANT
  2. MYFORTIC [Concomitant]
     Indication: RENAL TRANSPLANT
     Dosage: 720 UNK, BID
  3. PROGRAF [Suspect]
     Indication: RENAL TRANSPLANT
     Dosage: 3 MG, BID
     Route: 065
  4. PROGRAF [Suspect]
     Indication: PANCREAS TRANSPLANT
  5. PREDNISONE [Concomitant]
     Indication: PANCREAS TRANSPLANT
  6. PREDNISONE [Concomitant]
     Indication: RENAL TRANSPLANT
     Dosage: 5 MG, UID/QD
     Route: 048

REACTIONS (1)
  - DEATH [None]
